FAERS Safety Report 4854385-2 (Version None)
Quarter: 2005Q4

REPORT INFORMATION
  Report Type: 
  Country: None (occurrence: None)
  Receive Date: 20051215
  Receipt Date: 20051011
  Transmission Date: 20060501
  Serious: Yes (Hospitalization, Other)
  Sender: FDA-Public Use
  Company Number: US-BRISTOL-MYERS SQUIBB COMPANY-13140389

PATIENT
  Age: 63 Year
  Sex: Male
  Weight: 64 kg

DRUGS (3)
  1. KENALOG [Suspect]
     Indication: NASAL POLYPS
     Dates: start: 20050901
  2. ALLEGRA [Concomitant]
  3. RHINOCORT [Concomitant]

REACTIONS (1)
  - ANAPHYLACTIC REACTION [None]
